FAERS Safety Report 21679605 (Version 1)
Quarter: 2022Q4

REPORT INFORMATION
  Report Type: Spontaneous
  Country: US (occurrence: US)
  Receive Date: 20221205
  Receipt Date: 20221205
  Transmission Date: 20230112
  Serious: No
  Sender: FDA-Public Use
  Company Number: US-STRIDES ARCOLAB LIMITED-2022SP012485

PATIENT
  Age: 7 Decade
  Sex: Female

DRUGS (2)
  1. IMIPRAMINE HYDROCHLORIDE [Suspect]
     Active Substance: IMIPRAMINE HYDROCHLORIDE
     Indication: Generalised anxiety disorder
     Dosage: UNK, DOSE: INITIALLY RECEIVED IMIPRAMINE AT A DOSE GRADUALLY INCREASED TO 250 MG.
     Route: 065
  2. IMIPRAMINE HYDROCHLORIDE [Suspect]
     Active Substance: IMIPRAMINE HYDROCHLORIDE
     Dosage: 30 MILLIGRAM, QD (DAILY)
     Route: 065

REACTIONS (2)
  - Skin hyperpigmentation [Recovered/Resolved]
  - Off label use [Unknown]
